FAERS Safety Report 13470982 (Version 1)
Quarter: 2017Q2

REPORT INFORMATION
  Report Type: Spontaneous
  Country: ES (occurrence: ES)
  Receive Date: 20170424
  Receipt Date: 20170424
  Transmission Date: 20170830
  Serious: Yes (Hospitalization)
  Sender: FDA-Public Use
  Company Number: ES-BRISTOL-MYERS SQUIBB COMPANY-BMS-2017-033400

PATIENT
  Age: 47 Year
  Sex: Female
  Weight: 67 kg

DRUGS (2)
  1. YERVOY [Suspect]
     Active Substance: IPILIMUMAB
     Indication: METASTATIC MALIGNANT MELANOMA
     Dosage: 150 MG, Q2WK
     Route: 042
     Dates: start: 20170215
  2. OPDIVO [Suspect]
     Active Substance: NIVOLUMAB
     Indication: METASTATIC MALIGNANT MELANOMA
     Dosage: 1 DF, Q2WK
     Route: 041
     Dates: start: 20160922, end: 20161201

REACTIONS (1)
  - Strongyloidiasis [Recovered/Resolved]

NARRATIVE: CASE EVENT DATE: 20170227
